FAERS Safety Report 4628170-0 (Version None)
Quarter: 2005Q2

REPORT INFORMATION
  Report Type: 
  Country: None (occurrence: None)
  Receive Date: 20050401
  Receipt Date: 20040315
  Transmission Date: 20051028
  Serious: No
  Sender: FDA-Public Use
  Company Number: 7741

PATIENT
  Age: 63 Year
  Sex: Female

DRUGS (2)
  1. LEUCOVORIN CALCIUM [Suspect]
     Indication: COLON CANCER
     Dosage: 75 MG PO
     Route: 048
     Dates: start: 20040113, end: 20040201
  2. TEGAFUR URACIL [Suspect]
     Indication: COLON CANCER
     Dosage: 600 MG PO
     Route: 048
     Dates: start: 20040113, end: 20040201

REACTIONS (5)
  - ANOREXIA [None]
  - DIARRHOEA [None]
  - NAUSEA [None]
  - OEDEMA PERIPHERAL [None]
  - STOMATITIS [None]
